FAERS Safety Report 8681276 (Version 2)
Quarter: 2013Q4

REPORT INFORMATION
  Report Type: Spontaneous
  Country: US (occurrence: US)
  Receive Date: 20120725
  Receipt Date: 20131031
  Transmission Date: 20140711
  Serious: No
  Sender: FDA-Public Use
  Company Number: US-009507513-2012SP006829

PATIENT
  Sex: Male

DRUGS (6)
  1. PEG-INTRON [Suspect]
     Indication: HEPATITIS C
     Route: 058
     Dates: start: 201111
  2. VICTRELIS [Suspect]
     Dates: start: 201112
  3. RIBASPHERE [Suspect]
     Dates: start: 201111
  4. ALEVE [Concomitant]
  5. TRAZODONE HYDROCHLORIDE [Concomitant]
  6. CITALOPRAM [Concomitant]

REACTIONS (7)
  - Impulsive behaviour [Unknown]
  - Chills [Unknown]
  - Influenza like illness [Unknown]
  - Fatigue [Unknown]
  - Aggression [Unknown]
  - Insomnia [Unknown]
  - Overdose [Unknown]
